FAERS Safety Report 11934801 (Version 1)
Quarter: 2016Q1

REPORT INFORMATION
  Report Type: Spontaneous
  Country: US (occurrence: US)
  Receive Date: 20160121
  Receipt Date: 20160121
  Transmission Date: 20160526
  Serious: No
  Sender: FDA-Public Use
  Company Number: US-009507513-1601USA004278

PATIENT
  Age: 64 Year
  Sex: Male

DRUGS (2)
  1. HEXADROL [Suspect]
     Active Substance: DEXAMETHASONE
     Indication: BRAIN OEDEMA
  2. HEXADROL [Suspect]
     Active Substance: DEXAMETHASONE
     Indication: MOBILITY DECREASED
     Dosage: UNK
     Route: 048

REACTIONS (3)
  - Muscular weakness [Recovering/Resolving]
  - Weight increased [Unknown]
  - Hyperglycaemia [Unknown]
